FAERS Safety Report 10927268 (Version 2)
Quarter: 2015Q3

REPORT INFORMATION
  Report Type: Spontaneous
  Country: AU (occurrence: AU)
  Receive Date: 20150318
  Receipt Date: 20150916
  Transmission Date: 20151125
  Serious: Yes (Hospitalization, Other)
  Sender: FDA-Public Use
  Company Number: AU-GLAXOSMITHKLINE-AU2015GSK034055

PATIENT
  Age: 54 Year
  Sex: Male
  Weight: 72 kg

DRUGS (4)
  1. SILDENAFIL. [Concomitant]
     Active Substance: SILDENAFIL
     Dosage: UNK
     Dates: end: 20141116
  2. VOLIBRIS [Suspect]
     Active Substance: AMBRISENTAN
     Indication: PRODUCT USED FOR UNKNOWN INDICATION
  3. AMBRISENTAN [Concomitant]
     Active Substance: AMBRISENTAN
  4. FLOLAN [Suspect]
     Active Substance: EPOPROSTENOL SODIUM
     Indication: PULMONARY ARTERIAL HYPERTENSION
     Dosage: 1500 MG, UNK
     Dates: start: 20120620

REACTIONS (9)
  - Exercise tolerance decreased [Recovered/Resolved]
  - Renal failure [Recovered/Resolved]
  - Oedema peripheral [Recovered/Resolved]
  - Pulmonary arterial hypertension [Recovered/Resolved]
  - Skin ulcer [Recovered/Resolved]
  - Walking distance test abnormal [Recovered/Resolved]
  - Fluid overload [Recovered/Resolved]
  - Plasma cell myeloma [Unknown]
  - Weight increased [Recovered/Resolved]

NARRATIVE: CASE EVENT DATE: 201501
